FAERS Safety Report 8363404-0 (Version None)
Quarter: 2012Q2

REPORT INFORMATION
  Report Type: 
  Country: None (occurrence: None)
  Receive Date: 20120516
  Receipt Date: 20120105
  Transmission Date: 20120825
  Serious: Yes (Hospitalization, Other)
  Sender: FDA-Public Use
  Company Number: US-ALEXION-A201101939

PATIENT
  Sex: Female
  Weight: 54.422 kg

DRUGS (13)
  1. ATIVAN [Concomitant]
     Indication: ANXIETY
     Dosage: 0.5 MG, BID AS NEEDED
     Route: 048
  2. CELEXA [Concomitant]
     Dosage: 40 MG, QD
     Route: 048
  3. ZOFRAN [Concomitant]
     Indication: NAUSEA
     Dosage: 4 MG, Q4-6HR AS NEEDED
  4. SOLIRIS [Suspect]
     Indication: PAROXYSMAL NOCTURNAL HAEMOGLOBINURIA
     Dosage: UNK
     Route: 042
  5. FOLIC ACID [Concomitant]
     Dosage: 1 MG, QD
     Route: 048
  6. ZOFRAN [Concomitant]
     Indication: VOMITING
  7. EMLA [Concomitant]
     Dosage: APPLY 1 HR BEFORE PORT ACCESS
     Route: 061
  8. COUMADIN [Concomitant]
     Dosage: 9 MG, QD
     Route: 048
  9. RESTORIL [Concomitant]
     Indication: INSOMNIA
     Dosage: 15 MG-30 MG, QHS AS NEEDED
     Route: 048
  10. ALLOPURINOL [Concomitant]
     Dosage: 300 MG, QD
  11. ATIVAN [Concomitant]
     Indication: NAUSEA
  12. PROMETHAZINE HCL [Concomitant]
     Indication: NAUSEA
     Dosage: 12.5 MG - 25 MG, Q6HR AS NEEDED
     Route: 048
  13. OXYCODONE HYDROCHLORIDE [Concomitant]
     Indication: PAIN
     Dosage: 5 MG, Q4-6HR AS NEEDED

REACTIONS (9)
  - HAEMOGLOBIN DECREASED [None]
  - ABDOMINAL ADHESIONS [None]
  - POST PROCEDURAL HAEMORRHAGE [None]
  - WHITE BLOOD CELL COUNT DECREASED [None]
  - PYREXIA [None]
  - PLATELET COUNT DECREASED [None]
  - CHOLELITHIASIS [None]
  - ASCITES [None]
  - PANCREATITIS ACUTE [None]
